FAERS Safety Report 5904830-6 (Version None)
Quarter: 2008Q4

REPORT INFORMATION
  Report Type: 
  Country: None (occurrence: None)
  Receive Date: 20081001
  Receipt Date: 20080925
  Transmission Date: 20090506
  Serious: Yes (Hospitalization, Disabling)
  Sender: FDA-Public Use
  Company Number: US-MERCK-0809USA04554

PATIENT
  Sex: Male

DRUGS (3)
  1. JANUVIA [Suspect]
     Indication: DIABETES MELLITUS
     Route: 048
  2. ACTOS [Concomitant]
     Route: 065
  3. LASIX [Concomitant]
     Route: 065

REACTIONS (1)
  - CARDIAC FAILURE [None]
